FAERS Safety Report 9801480 (Version 2)
Quarter: 2014Q1

REPORT INFORMATION
  Report Type: Spontaneous
  Country: US (occurrence: US)
  Receive Date: 20140107
  Receipt Date: 20140107
  Transmission Date: 20141002
  Serious: No
  Sender: FDA-Public Use
  Company Number: US-GILEAD-2010-0032954

PATIENT
  Sex: Male

DRUGS (2)
  1. RANEXA [Suspect]
     Indication: ATRIAL FIBRILLATION
  2. COUMADIN [Concomitant]
     Route: 048
     Dates: start: 20090831

REACTIONS (1)
  - International normalised ratio increased [Recovered/Resolved]
